FAERS Safety Report 4710277-0 (Version None)
Quarter: 2005Q3

REPORT INFORMATION
  Report Type: 
  Country: None (occurrence: None)
  Receive Date: 20050707
  Receipt Date: 20050701
  Transmission Date: 20060218
  Serious: Yes (Other)
  Sender: FDA-Public Use
  Company Number: 2005-07-0092

PATIENT
  Age: 15 Year
  Sex: Male

DRUGS (3)
  1. CLARITIN-D [Suspect]
     Indication: PRURITUS
     Dosage: 2TAB/8-12H ORAL
     Route: 048
     Dates: start: 20050625, end: 20050625
  2. CLARITIN-D [Suspect]
     Indication: SWELLING FACE
     Dosage: 2TAB/8-12H ORAL
     Route: 048
     Dates: start: 20050625, end: 20050625
  3. CLARINEX [Suspect]
     Dosage: 2TAB/8-12H ORAL
     Route: 048
     Dates: start: 20050625, end: 20050625

REACTIONS (4)
  - AGITATION [None]
  - AMNESIA [None]
  - PHYSICAL ASSAULT [None]
  - PSYCHOTIC DISORDER [None]
